FAERS Safety Report 26125840 (Version 1)
Quarter: 2025Q4

REPORT INFORMATION
  Report Type: Report from Study
  Country: US (occurrence: US)
  Receive Date: 20251205
  Receipt Date: 20251205
  Transmission Date: 20260118
  Serious: Yes (Hospitalization, Other)
  Sender: GILEAD
  Company Number: US-GILEAD-2025-0739557

PATIENT
  Sex: Male

DRUGS (4)
  1. AZTREONAM LYSINE [Suspect]
     Active Substance: AZTREONAM LYSINE
     Indication: Cystic fibrosis
     Dosage: 75 MG, TID, CYCLING 28 DAYS ON AND 28 DAYS OFF
     Route: 055
  2. PULMOZYME [Concomitant]
     Active Substance: DORNASE ALFA
     Dosage: 1MG/ML 2.5ML AMP 6^S
     Route: 065
  3. ALYFTREK [Concomitant]
     Active Substance: DEUTIVACAFTOR\TEZACAFTOR\VANZACAFTOR
     Dosage: 10/50/125 MG TABLETS 14^S
     Route: 065
  4. TOBRAMYCIN SULFATE [Concomitant]
     Active Substance: TOBRAMYCIN SULFATE
     Dosage: 300MG/5ML AMP 56 PK
     Route: 055

REACTIONS (3)
  - COVID-19 [Unknown]
  - Diabetic ketoacidosis [Unknown]
  - Product dose omission issue [Unknown]
